FAERS Safety Report 8879967 (Version 1)
Quarter: 2012Q4

REPORT INFORMATION
  Report Type: 
  Country: IT (occurrence: FR)
  Receive Date: 20121101
  Receipt Date: 20121101
  Transmission Date: 20130627
  Serious: Yes (Hospitalization)
  Sender: FDA-Public Use
  Company Number: FR-FRI-1000039967

PATIENT
  Age: 92 Year
  Sex: Female

DRUGS (5)
  1. NEBIVOLOL [Suspect]
     Dosage: 5 mg
     Route: 048
     Dates: end: 20121005
  2. SPIRONOLACTONE [Suspect]
     Indication: HYPERTENSION
     Dosage: 50 mg
     Route: 048
     Dates: end: 20121005
  3. RISPERDAL [Concomitant]
     Dosage: 0.5 mg
     Route: 048
     Dates: end: 20121005
  4. KARDEGIC [Concomitant]
     Dosage: 75 mg
     Route: 048
     Dates: end: 20121005
  5. MACROGOL [Concomitant]
     Dosage: 20 mg
     Route: 048
     Dates: end: 20121005

REACTIONS (3)
  - Renal failure [Recovering/Resolving]
  - Hypotension [Recovered/Resolved]
  - Hyperkalaemia [Recovered/Resolved]
